FAERS Safety Report 25132396 (Version 1)
Quarter: 2025Q1

REPORT INFORMATION
  Report Type: Spontaneous
  Country: CA (occurrence: CA)
  Receive Date: 20250328
  Receipt Date: 20250328
  Transmission Date: 20250409
  Serious: Yes (Other)
  Sender: CELLTRION
  Company Number: CA-CELLTRION INC.-2025CA009022

PATIENT

DRUGS (1)
  1. INFLIXIMAB [Suspect]
     Active Substance: INFLIXIMAB
     Indication: Crohn^s disease
     Dosage: 120 MG, EVERY 7 DAYS
     Route: 058
     Dates: start: 20240808

REACTIONS (3)
  - Crohn^s disease [Unknown]
  - Faecal calprotectin increased [Unknown]
  - Intentional product use issue [Unknown]
